FAERS Safety Report 6889714-1 (Version None)
Quarter: 2010Q3

REPORT INFORMATION
  Report Type: 
  Country: None (occurrence: None)
  Receive Date: 20100730
  Receipt Date: 20080410
  Transmission Date: 20110219
  Serious: Yes (Other)
  Sender: FDA-Public Use
  Company Number: US-PFIZER INC-2008031838

PATIENT
  Sex: Female
  Weight: 134.3 kg

DRUGS (6)
  1. LIPITOR [Suspect]
     Dates: start: 20080201, end: 20080301
  2. CELEBREX [Concomitant]
  3. HYDROCHLOROTHIAZIDE [Concomitant]
  4. MOMETASONE FUROATE [Concomitant]
  5. CENESTIN [Concomitant]
  6. BUDESONIDE [Concomitant]

REACTIONS (1)
  - DRUG HYPERSENSITIVITY [None]
